FAERS Safety Report 16090947 (Version 1)
Quarter: 2019Q1

REPORT INFORMATION
  Report Type: Spontaneous
  Country: US (occurrence: US)
  Receive Date: 20190319
  Receipt Date: 20190319
  Transmission Date: 20190418
  Serious: Yes (Hospitalization, Other)
  Sender: FDA-Public Use
  Company Number: US-BAYER-2019-054878

PATIENT
  Age: 30 Year
  Sex: Female

DRUGS (1)
  1. SKYLA [Suspect]
     Active Substance: LEVONORGESTREL
     Indication: CONTRACEPTION
     Dosage: 14 MCG/24HR, CONT
     Route: 015
     Dates: start: 201808

REACTIONS (4)
  - Ectopic pregnancy with contraceptive device [None]
  - Drug ineffective [None]
  - Abdominal pain lower [None]
  - Ruptured ectopic pregnancy [None]

NARRATIVE: CASE EVENT DATE: 201903
